FAERS Safety Report 25653754 (Version 1)
Quarter: 2025Q3

REPORT INFORMATION
  Report Type: Spontaneous
  Country: US (occurrence: US)
  Receive Date: 20250807
  Receipt Date: 20250807
  Transmission Date: 20251021
  Serious: Yes (Hospitalization)
  Sender: ROCHE
  Company Number: US-ROCHE-10000353122

PATIENT
  Sex: Male

DRUGS (5)
  1. ACTEMRA ACTPEN [Suspect]
     Active Substance: TOCILIZUMAB
     Indication: Systemic sclerosis pulmonary
     Route: 058
     Dates: start: 202505
  2. OFEV [Concomitant]
     Active Substance: NINTEDANIB
     Indication: Systemic sclerosis pulmonary
  3. OFEV [Concomitant]
     Active Substance: NINTEDANIB
     Indication: Idiopathic pulmonary fibrosis
  4. ADEMPAS [Concomitant]
     Active Substance: RIOCIGUAT
  5. OPSUMIT [Concomitant]
     Active Substance: MACITENTAN

REACTIONS (2)
  - Infection [Unknown]
  - Depression [Unknown]
